FAERS Safety Report 15382084 (Version 2)
Quarter: 2018Q4

REPORT INFORMATION
  Report Type: Spontaneous
  Country: US (occurrence: US)
  Receive Date: 20180913
  Receipt Date: 20181220
  Transmission Date: 20190204
  Serious: Yes (Hospitalization)
  Sender: FDA-Public Use
  Company Number: US-ASTELLAS-2018US037511

PATIENT
  Sex: Male

DRUGS (1)
  1. XTANDI [Suspect]
     Active Substance: ENZALUTAMIDE
     Indication: PROSTATE CANCER
     Route: 048
     Dates: start: 20180224

REACTIONS (4)
  - Muscle disorder [Unknown]
  - Inappropriate schedule of product administration [Unknown]
  - Dysphagia [Not Recovered/Not Resolved]
  - Product size issue [Unknown]
